FAERS Safety Report 25423287 (Version 2)
Quarter: 2025Q2

REPORT INFORMATION
  Report Type: Spontaneous
  Country: US (occurrence: US)
  Receive Date: 20250611
  Receipt Date: 20250625
  Transmission Date: 20250716
  Serious: Yes (Other)
  Sender: ROCHE
  Company Number: US-ROCHE-10000300015

PATIENT
  Sex: Female

DRUGS (1)
  1. RITUXAN [Suspect]
     Active Substance: RITUXIMAB
     Indication: Product used for unknown indication
     Route: 065
     Dates: start: 202502

REACTIONS (10)
  - Swelling face [Unknown]
  - Hypoaesthesia [Unknown]
  - Deafness unilateral [Unknown]
  - Flushing [Unknown]
  - Pain [Unknown]
  - Hypertension [Unknown]
  - Glossodynia [Unknown]
  - Candida infection [Unknown]
  - Myalgia [Unknown]
  - Arthralgia [Unknown]
